FAERS Safety Report 21390593 (Version 2)
Quarter: 2022Q4

REPORT INFORMATION
  Report Type: Spontaneous
  Country: IT (occurrence: IT)
  Receive Date: 20220929
  Receipt Date: 20221107
  Transmission Date: 20230113
  Serious: Yes (Hospitalization, Other)
  Sender: FDA-Public Use
  Company Number: None

PATIENT
  Age: 5 Year
  Sex: Male

DRUGS (15)
  1. PHENOBARBITAL [Suspect]
     Active Substance: PHENOBARBITAL
     Indication: Febrile infection-related epilepsy syndrome
     Dosage: UNK
     Route: 065
  2. PHENOBARBITAL [Suspect]
     Active Substance: PHENOBARBITAL
     Indication: Partial seizures
  3. LEVETIRACETAM [Suspect]
     Active Substance: LEVETIRACETAM
     Indication: Immune-mediated encephalitis
     Dosage: 50 MILLIGRAM/KILOGRAM, UP TO
     Route: 065
  4. LEVETIRACETAM [Suspect]
     Active Substance: LEVETIRACETAM
     Indication: Febrile infection-related epilepsy syndrome
     Dosage: UNK
     Route: 065
  5. LEVETIRACETAM [Suspect]
     Active Substance: LEVETIRACETAM
     Indication: Partial seizures
  6. VALPROIC ACID [Suspect]
     Active Substance: VALPROIC ACID
     Indication: Febrile infection-related epilepsy syndrome
     Dosage: 30 MILLIGRAM/KILOGRAM, UP TO
     Route: 065
  7. VALPROIC ACID [Suspect]
     Active Substance: VALPROIC ACID
     Indication: Immune-mediated encephalitis
     Dosage: UNK
     Route: 065
  8. VALPROIC ACID [Suspect]
     Active Substance: VALPROIC ACID
     Indication: Partial seizures
  9. PHENYTOIN [Suspect]
     Active Substance: PHENYTOIN
     Indication: Febrile infection-related epilepsy syndrome
     Dosage: UNK
     Route: 065
  10. PHENYTOIN [Suspect]
     Active Substance: PHENYTOIN
     Indication: Partial seizures
  11. METHYLPREDNISOLONE [Suspect]
     Active Substance: METHYLPREDNISOLONE
     Indication: Immune-mediated encephalitis
     Dosage: 30 MILLIGRAM/KILOGRAM PER DAY, HIGH DOSE
     Route: 042
  12. METHYLPREDNISOLONE [Suspect]
     Active Substance: METHYLPREDNISOLONE
     Indication: Febrile infection-related epilepsy syndrome
  13. TOPIRAMATE [Suspect]
     Active Substance: TOPIRAMATE
     Indication: Febrile infection-related epilepsy syndrome
     Dosage: 10 MILLIGRAM/KILOGRAM
     Route: 065
  14. THIOPENTAL [Concomitant]
     Active Substance: THIOPENTAL
     Indication: Product used for unknown indication
     Dosage: UNK, INFUSION
     Route: 042
  15. MIDAZOLAM [Concomitant]
     Active Substance: MIDAZOLAM
     Indication: Sedative therapy
     Dosage: UNK
     Route: 065

REACTIONS (3)
  - Cerebral atrophy [Recovered/Resolved]
  - Drug ineffective [Unknown]
  - Off label use [Unknown]
